FAERS Safety Report 14732249 (Version 2)
Quarter: 2018Q2

REPORT INFORMATION
  Report Type: Spontaneous
  Country: US (occurrence: US)
  Receive Date: 20180409
  Receipt Date: 20180409
  Transmission Date: 20180711
  Serious: No
  Sender: FDA-Public Use
  Company Number: US-TEVA-2018-US-878164

PATIENT
  Sex: Male

DRUGS (2)
  1. STRATTERA [Suspect]
     Active Substance: ATOMOXETINE HYDROCHLORIDE
     Indication: AFFECTIVE DISORDER
  2. STRATTERA [Suspect]
     Active Substance: ATOMOXETINE HYDROCHLORIDE
     Indication: ATTENTION DEFICIT/HYPERACTIVITY DISORDER
     Route: 065
     Dates: start: 201608

REACTIONS (7)
  - Depression [Recovered/Resolved]
  - Therapeutic response decreased [Unknown]
  - Executive dysfunction [Recovered/Resolved]
  - Dyspepsia [Recovered/Resolved]
  - Discomfort [Recovered/Resolved]
  - Product substitution issue [Unknown]
  - Anxiety [Recovered/Resolved]
